FAERS Safety Report 9273381 (Version 1)
Quarter: 2013Q2

REPORT INFORMATION
  Report Type: Spontaneous
  Country: US (occurrence: US)
  Receive Date: 20130506
  Receipt Date: 20130506
  Transmission Date: 20140414
  Serious: No
  Sender: FDA-Public Use
  Company Number: US-PFIZER INC-2013136526

PATIENT
  Age: 67 Year
  Sex: Female
  Weight: 61.22 kg

DRUGS (5)
  1. LEVOXYL [Suspect]
     Indication: HYPOTHYROIDISM
     Dosage: 50 UG, 1X/DAY
     Route: 048
     Dates: end: 20130430
  2. LIPITOR [Concomitant]
     Indication: BLOOD CHOLESTEROL INCREASED
     Dosage: 10 MG, 1X/DAY
  3. ZOLOFT [Concomitant]
     Indication: DEPRESSION
     Dosage: 25 MG, 1X/DAY
  4. ATENOLOL [Concomitant]
     Indication: CARDIAC DISORDER
     Dosage: 12.5 MG, 1X/DAY
  5. ALPRAZOLAM [Concomitant]
     Dosage: 0.5 MG, 4X/DAY

REACTIONS (4)
  - Depression [Not Recovered/Not Resolved]
  - Fatigue [Not Recovered/Not Resolved]
  - Muscular weakness [Not Recovered/Not Resolved]
  - Asthenia [Not Recovered/Not Resolved]
